FAERS Safety Report 24245633 (Version 1)
Quarter: 2024Q3

REPORT INFORMATION
  Report Type: Report from Study
  Country: BR (occurrence: BR)
  Receive Date: 20240824
  Receipt Date: 20240824
  Transmission Date: 20241016
  Serious: Yes (Other)
  Sender: JOHNSON AND JOHNSON
  Company Number: BR-JNJFOC-20240457426

PATIENT
  Age: 33 Year
  Sex: Male
  Weight: 75 kg

DRUGS (13)
  1. SPRAVATO [Suspect]
     Active Substance: ESKETAMINE
     Indication: Major depression
  2. SPRAVATO [Suspect]
     Active Substance: ESKETAMINE
     Dates: start: 20240515
  3. SPRAVATO [Suspect]
     Active Substance: ESKETAMINE
     Dates: start: 20240517
  4. SPRAVATO [Suspect]
     Active Substance: ESKETAMINE
     Dates: start: 20240628
  5. SPRAVATO [Suspect]
     Active Substance: ESKETAMINE
     Dates: start: 202408
  6. VENLAFAXINE [Concomitant]
     Active Substance: VENLAFAXINE HYDROCHLORIDE
     Dosage: 150 MG/DAY IN THE MORNING
     Route: 065
  7. ZETRON XL [Concomitant]
     Dosage: 150 MG IN THE MORNING
     Route: 065
  8. QUETIAPINE [Concomitant]
     Active Substance: QUETIAPINE
     Dosage: 300 MG AT NIGHT (2 TABLETS OF 300 MG)
     Route: 065
  9. LITHIUM [Concomitant]
     Active Substance: LITHIUM
     Route: 065
  10. TOPIRAMATE [Concomitant]
     Active Substance: TOPIRAMATE
     Dosage: 50 MG AT NIGHT
  11. ALPRAZOLAM [Concomitant]
     Active Substance: ALPRAZOLAM
  12. REXULTI [Concomitant]
     Active Substance: BREXPIPRAZOLE
     Dosage: 1 MG AFTER LUNCH
  13. MIRTAZAPINE [Concomitant]
     Active Substance: MIRTAZAPINE
     Dosage: 30 MG AT BEDTIME
     Route: 065

REACTIONS (6)
  - Suicidal ideation [Unknown]
  - Major depression [Unknown]
  - Somnolence [Unknown]
  - Off label use [Unknown]
  - Product dose omission issue [Unknown]
  - Product administration error [Unknown]

NARRATIVE: CASE EVENT DATE: 20240703
